FAERS Safety Report 19713084 (Version 1)
Quarter: 2021Q3

REPORT INFORMATION
  Report Type: Spontaneous
  Country: US (occurrence: US)
  Receive Date: 20210817
  Receipt Date: 20210817
  Transmission Date: 20211014
  Serious: No
  Sender: FDA-Public Use
  Company Number: US-JAZZ-JPI-P-018823

PATIENT
  Age: 59 Year
  Sex: Female
  Weight: 155.45 kg

DRUGS (14)
  1. XYREM [Suspect]
     Active Substance: SODIUM OXYBATE
     Indication: HYPERSOMNIA
     Dosage: 4.5 GRAM, BID
     Route: 048
     Dates: start: 2011
  2. TRAMADOL. [Concomitant]
     Active Substance: TRAMADOL
  3. XYREM [Suspect]
     Active Substance: SODIUM OXYBATE
     Indication: NARCOLEPSY
     Dosage: 3 GRAM, BID
     Route: 048
     Dates: start: 20111207, end: 2011
  4. VALIUM [Concomitant]
     Active Substance: DIAZEPAM
  5. XYREM [Suspect]
     Active Substance: SODIUM OXYBATE
     Dosage: 5.25 GRAM, BID
     Route: 048
  6. BYSTOLIC [Concomitant]
     Active Substance: NEBIVOLOL HYDROCHLORIDE
  7. FENOFIBRATE. [Concomitant]
     Active Substance: FENOFIBRATE
  8. ZOLPIDEM [Concomitant]
     Active Substance: ZOLPIDEM TARTRATE
  9. NAPROSYN [Concomitant]
     Active Substance: NAPROXEN
  10. BUPROPION. [Concomitant]
     Active Substance: BUPROPION
  11. BYETTA [Concomitant]
     Active Substance: EXENATIDE
  12. LOSARTAN. [Concomitant]
     Active Substance: LOSARTAN
  13. AMLODIPINE [Concomitant]
     Active Substance: AMLODIPINE BESYLATE
  14. SIMVASTATIN. [Concomitant]
     Active Substance: SIMVASTATIN

REACTIONS (11)
  - Sneezing [Unknown]
  - Feeling abnormal [Recovered/Resolved]
  - Initial insomnia [Unknown]
  - Rhinorrhoea [Unknown]
  - Fatigue [Unknown]
  - Dehydration [Recovered/Resolved]
  - Nasopharyngitis [Unknown]
  - Abdominal discomfort [Recovered/Resolved]
  - Cough [Unknown]
  - Thirst [Recovered/Resolved]
  - Headache [Unknown]

NARRATIVE: CASE EVENT DATE: 20111206
